FAERS Safety Report 23977089 (Version 1)
Quarter: 2024Q2

REPORT INFORMATION
  Report Type: Spontaneous
  Country: GB (occurrence: GB)
  Receive Date: 20240614
  Receipt Date: 20240614
  Transmission Date: 20240715
  Serious: Yes (Other)
  Sender: FDA-Public Use
  Company Number: None

PATIENT
  Sex: Female

DRUGS (1)
  1. REMICADE [Suspect]
     Active Substance: INFLIXIMAB
     Indication: Product used for unknown indication
     Dosage: 450MG/295MLS DOSAGE BUT( 62.9MLS/95.94MG GIVEN) THEN SHE HAD REACTION
     Route: 041
     Dates: start: 20240613, end: 20240613

REACTIONS (1)
  - Dyspnoea [Recovered/Resolved]
